FAERS Safety Report 23196749 (Version 1)
Quarter: 2023Q4

REPORT INFORMATION
  Report Type: Report from Study
  Country: US (occurrence: None)
  Receive Date: 20231117
  Receipt Date: 20231117
  Transmission Date: 20240109
  Serious: Yes (Other)
  Sender: FDA-Public Use
  Company Number: 2023A256119

PATIENT
  Age: 29859 Day
  Sex: Female

DRUGS (1)
  1. TAGRISSO [Suspect]
     Active Substance: OSIMERTINIB
     Indication: Lung carcinoma cell type unspecified stage 0
     Route: 048
     Dates: start: 20200609

REACTIONS (8)
  - Dehydration [Recovering/Resolving]
  - Left ventricular failure [Recovering/Resolving]
  - Atrial fibrillation [Recovering/Resolving]
  - Lung disorder [Recovering/Resolving]
  - Dyspnoea exertional [Recovering/Resolving]
  - Nail growth abnormal [Recovering/Resolving]
  - Diarrhoea [Recovering/Resolving]
  - Skin discolouration [Recovering/Resolving]

NARRATIVE: CASE EVENT DATE: 20231108
